FAERS Safety Report 20837109 (Version 1)
Quarter: 2022Q2

REPORT INFORMATION
  Report Type: Report from Study
  Country: FR (occurrence: FR)
  Receive Date: 20220517
  Receipt Date: 20220517
  Transmission Date: 20220721
  Serious: Yes (Other)
  Sender: FDA-Public Use
  Company Number: FR-AMRYT PHARMACEUTICALS DAC-AEGR005884

PATIENT

DRUGS (2)
  1. METRELEPTIN [Suspect]
     Active Substance: METRELEPTIN
     Indication: Partial lipodystrophy
     Dosage: UNK
  2. METFORMIN [Concomitant]
     Active Substance: METFORMIN HYDROCHLORIDE
     Indication: Product used for unknown indication

REACTIONS (3)
  - Atrial fibrillation [Unknown]
  - Drug ineffective [Unknown]
  - Therapy cessation [Unknown]
